FAERS Safety Report 25549968 (Version 1)
Quarter: 2025Q3

REPORT INFORMATION
  Report Type: Spontaneous
  Country: US (occurrence: US)
  Receive Date: 20250714
  Receipt Date: 20250714
  Transmission Date: 20251020
  Serious: No
  Sender: NOVO NORDISK
  Company Number: US-NOVOPROD-1404219

PATIENT
  Age: 76 Year
  Sex: Female

DRUGS (1)
  1. SEMAGLUTIDE [Suspect]
     Active Substance: SEMAGLUTIDE
     Indication: Product used for unknown indication
     Dosage: 2.5ML (5MG/ML) INJECTABLE, 20 UNITS UNDER THE SKIN WEEKLY
     Route: 058
     Dates: start: 20250207

REACTIONS (5)
  - Sleep apnoea syndrome [Recovered/Resolved]
  - Weight loss poor [Unknown]
  - Dehydration [Recovered/Resolved]
  - Drug ineffective [Unknown]
  - Suspected counterfeit product [Unknown]

NARRATIVE: CASE EVENT DATE: 20240901
